FAERS Safety Report 7644632-6 (Version None)
Quarter: 2011Q3

REPORT INFORMATION
  Report Type: 
  Country: None (occurrence: None)
  Receive Date: 20110729
  Receipt Date: 20110726
  Transmission Date: 20111222
  Serious: Yes (Death, Other)
  Sender: FDA-Public Use
  Company Number: ZA-SANOFI-AVENTIS-2011SA047832

PATIENT
  Age: 39 Year
  Sex: Female

DRUGS (2)
  1. LANTUS [Suspect]
     Dosage: 6 IU + 5 IU
     Dates: end: 20110716
  2. NOVORAPID [Concomitant]
     Dosage: 3-5 IU BEFORE MEALS
     Dates: end: 20110716

REACTIONS (2)
  - HYPOGLYCAEMIA [None]
  - WOUND [None]
